FAERS Safety Report 4362633-0 (Version None)
Quarter: 2004Q2

REPORT INFORMATION
  Report Type: 
  Country: None (occurrence: None)
  Receive Date: 20040524
  Receipt Date: 20040518
  Transmission Date: 20050107
  Serious: Yes (Hospitalization)
  Sender: FDA-Public Use
  Company Number: 200413844US

PATIENT
  Sex: Female

DRUGS (2)
  1. TAXOTERE [Suspect]
     Indication: BREAST CANCER METASTATIC
  2. TRASTUZUMAB [Concomitant]

REACTIONS (1)
  - HYPOXIA [None]
